FAERS Safety Report 9773895 (Version 2)
Quarter: 2014Q1

REPORT INFORMATION
  Report Type: Spontaneous
  Country: US (occurrence: US)
  Receive Date: 20131220
  Receipt Date: 20140212
  Transmission Date: 20141002
  Serious: No
  Sender: FDA-Public Use
  Company Number: US-B.I. PHARMACEUTICALS,INC./RIDGEFIELD-2013-BI-40922BP

PATIENT
  Age: 86 Year
  Sex: Female

DRUGS (12)
  1. SPIRIVA [Suspect]
     Indication: CHRONIC OBSTRUCTIVE PULMONARY DISEASE
     Dosage: 18 MCG
     Route: 055
     Dates: start: 201201
  2. SPIRIVA [Suspect]
     Dosage: 18 MCG
     Route: 048
     Dates: start: 201201
  3. PLAVIX [Concomitant]
     Indication: ANTICOAGULANT THERAPY
     Dosage: 75 MG
     Route: 048
     Dates: start: 2007
  4. ASPIRIN [Concomitant]
     Indication: CARDIAC DISORDER
     Dosage: 81 MG
     Route: 048
     Dates: start: 2007
  5. RANEXA [Concomitant]
     Indication: CARDIAC DISORDER
     Dosage: 1000 MG
     Route: 048
     Dates: start: 2007
  6. DIOVAN [Concomitant]
     Indication: CARDIOMEGALY
     Dosage: 8 MG
     Route: 048
     Dates: start: 2007
  7. LIPITOR [Concomitant]
     Indication: BLOOD CHOLESTEROL INCREASED
     Dosage: DAILY DOSE: 5
     Route: 048
     Dates: start: 2007
  8. NEXIUM [Concomitant]
     Indication: GASTROOESOPHAGEAL REFLUX DISEASE
     Dosage: 40 MG
     Route: 048
     Dates: start: 2012
  9. VERAPAMIL [Concomitant]
     Indication: CARDIAC DISORDER
     Dosage: 180 MG
     Route: 048
  10. AZELASTINE [Concomitant]
     Indication: SINUSITIS
     Dosage: FORMULATION: (NASAL SPRAY) STRENGTH: 2 SPRAYS EACH NOSTRIL; DAILY DOSE: 8 SPRAYS
     Route: 045
     Dates: start: 2012
  11. LUMIGAN [Concomitant]
     Indication: GLAUCOMA
     Dosage: STRENGTH: 1 DROP IN EACH EYE; DAILY DOSE: 2 DROPS
     Route: 050
     Dates: start: 2003
  12. TIMOLOL [Concomitant]
     Indication: GLAUCOMA
     Dosage: STRENGTH: 1 DROP IN EACH EYE; DAILY DOSE: 4 DROPS
     Route: 050
     Dates: start: 2012

REACTIONS (3)
  - Dry mouth [Not Recovered/Not Resolved]
  - Dysphonia [Not Recovered/Not Resolved]
  - Incorrect route of drug administration [Recovered/Resolved]
